FAERS Safety Report 4834989-3 (Version None)
Quarter: 2005Q4

REPORT INFORMATION
  Report Type: 
  Country: None (occurrence: None)
  Receive Date: 20051114
  Receipt Date: 20050930
  Transmission Date: 20060501
  Serious: Yes (Death)
  Sender: FDA-Public Use
  Company Number: 2005AL004049

PATIENT
  Age: 39 Year
  Sex: Male

DRUGS (4)
  1. LORAZEPAM [Suspect]
     Dosage: PO
     Route: 048
  2. VENLAFAXINE [Suspect]
     Dosage: PO
     Route: 048
  3. DIPHENOXYLATE HCL W/ ATROPINE SULFATE [Suspect]
     Dosage: PO
     Route: 048
  4. HYDROCODONE [Suspect]
     Dosage: PO
     Route: 048

REACTIONS (5)
  - COMPLETED SUICIDE [None]
  - DEPRESSED LEVEL OF CONSCIOUSNESS [None]
  - MIOSIS [None]
  - MULTIPLE DRUG OVERDOSE INTENTIONAL [None]
  - RESPIRATORY DISORDER [None]
